FAERS Safety Report 18180371 (Version 2)
Quarter: 2020Q4

REPORT INFORMATION
  Report Type: Report from Study
  Country: None (occurrence: NZ)
  Receive Date: 20200821
  Receipt Date: 20201103
  Transmission Date: 20210113
  Serious: Yes (Hospitalization)
  Sender: FDA-Public Use
  Company Number: NZ-ABBVIE-20K-118-3507018-00

PATIENT
  Age: 40 Year
  Sex: Female

DRUGS (3)
  1. TRAMADOL. [Suspect]
     Active Substance: TRAMADOL
     Indication: PAIN
     Route: 065
  2. HUMIRA [Suspect]
     Active Substance: ADALIMUMAB
     Route: 058
     Dates: start: 2020
  3. HUMIRA [Suspect]
     Active Substance: ADALIMUMAB
     Indication: CROHN^S DISEASE
     Dosage: LOADING DOSE
     Route: 058
     Dates: start: 20200730, end: 20200730

REACTIONS (14)
  - Diarrhoea [Unknown]
  - Pain [Not Recovered/Not Resolved]
  - Feeling abnormal [Unknown]
  - Dizziness [Unknown]
  - Fatigue [Unknown]
  - Unevaluable event [Unknown]
  - Headache [Not Recovered/Not Resolved]
  - Burning sensation [Unknown]
  - Facial pain [Not Recovered/Not Resolved]
  - Abdominal discomfort [Unknown]
  - Nausea [Not Recovered/Not Resolved]
  - Gastrointestinal pain [Unknown]
  - Migraine [Unknown]
  - Injection site pain [Unknown]

NARRATIVE: CASE EVENT DATE: 2020
